FAERS Safety Report 7215695-7 (Version None)
Quarter: 2011Q1

REPORT INFORMATION
  Report Type: 
  Country: None (occurrence: None)
  Receive Date: 20110104
  Receipt Date: 20110104
  Transmission Date: 20110831
  Serious: No
  Sender: FDA-Public Use
  Company Number: None

PATIENT
  Age: 39 Year
  Sex: Female
  Weight: 99.7913 kg

DRUGS (1)
  1. CHANTIX [Suspect]

REACTIONS (4)
  - PSYCHOLOGICAL ABUSE [None]
  - EMOTIONAL DISORDER [None]
  - AGGRESSION [None]
  - SUICIDAL IDEATION [None]
